FAERS Safety Report 24281917 (Version 1)
Quarter: 2024Q3

REPORT INFORMATION
  Report Type: Spontaneous
  Country: FR (occurrence: FR)
  Receive Date: 20240904
  Receipt Date: 20240904
  Transmission Date: 20241017
  Serious: Yes (Life-Threatening, Hospitalization)
  Sender: CHEPLAPHARM
  Company Number: None

PATIENT
  Age: 53 Year
  Sex: Male
  Weight: 77.5 kg

DRUGS (9)
  1. HYDROXYUREA [Suspect]
     Active Substance: HYDROXYUREA
     Indication: Acute myeloid leukaemia
     Dosage: 2 X 500 MG TABLETS MORNING, NOON AND EVENING
     Dates: start: 20240404, end: 20240408
  2. TASIGNA [Suspect]
     Active Substance: NILOTINIB
     Indication: Acute myeloid leukaemia
     Dosage: 2 X 150 MG TABLETS MORNING AND EVENING
     Dates: start: 20240406, end: 20240415
  3. CYTARABINE [Suspect]
     Active Substance: CYTARABINE
     Indication: Acute myeloid leukaemia
     Dates: start: 20240409, end: 20240415
  4. DAUNORUBICIN [Suspect]
     Active Substance: DAUNORUBICIN
     Indication: Acute myeloid leukaemia
     Dates: start: 20240409, end: 20240411
  5. ALLOPURINOL [Concomitant]
     Active Substance: ALLOPURINOL
     Dosage: 100 MG 3-0-0 IN
  6. Lansoprazole viatris [Concomitant]
     Dosage: 15 MG 0-0-1 IN
  7. POSACONAZOLE [Concomitant]
     Active Substance: POSACONAZOLE
     Dosage: 100 MG 3-0-0 IN
  8. VALACYCLOVIR [Concomitant]
     Active Substance: VALACYCLOVIR HYDROCHLORIDE
     Dosage: 500 MG 1-0-1 IN?DAILY DOSE: 1000 MILLIGRAM
  9. GABAPENTIN [Concomitant]
     Active Substance: GABAPENTIN
     Dosage: 600 MG 1-1-1 IN?DAILY DOSE: 1800 MILLIGRAM

REACTIONS (3)
  - Mucosal inflammation [Recovered/Resolved]
  - Hepatic function abnormal [Recovered/Resolved]
  - Febrile bone marrow aplasia [Recovered/Resolved]

NARRATIVE: CASE EVENT DATE: 20240406
